FAERS Safety Report 5840424-9 (Version None)
Quarter: 2008Q3

REPORT INFORMATION
  Report Type: 
  Country: None (occurrence: None)
  Receive Date: 20080807
  Receipt Date: 20080724
  Transmission Date: 20090109
  Serious: Yes (Death)
  Sender: FDA-Public Use
  Company Number: 8035159

PATIENT
  Sex: Female

DRUGS (8)
  1. KEPPRA [Suspect]
     Indication: CONVULSION
     Dosage: 3000 MG/D;
     Dates: start: 20070709, end: 20080108
  2. KEPPRA [Suspect]
     Indication: CONVULSION
     Dosage: 4000 MG;
     Dates: start: 20080108, end: 20080611
  3. KEPPRA [Suspect]
     Indication: CONVULSION
     Dosage: 4500 MG;
     Dates: start: 20080611
  4. LAMOTRIGINE [Concomitant]
  5. ERYTHROMYCIN [Concomitant]
  6. CLINDAMYCIN [Concomitant]
  7. FOLIC ACID [Concomitant]
  8. VITAMIN TAB [Concomitant]

REACTIONS (6)
  - COMPLEX PARTIAL SEIZURES [None]
  - DRUG EXPOSURE DURING PREGNANCY [None]
  - MATERNAL DRUGS AFFECTING FOETUS [None]
  - SIMPLE PARTIAL SEIZURES [None]
  - STILLBIRTH [None]
  - UMBILICAL CORD AROUND NECK [None]
